FAERS Safety Report 15994554 (Version 1)
Quarter: 2019Q1

REPORT INFORMATION
  Report Type: Spontaneous
  Country: US (occurrence: US)
  Receive Date: 20190221
  Receipt Date: 20190221
  Transmission Date: 20190418
  Serious: Yes (Other)
  Sender: FDA-Public Use
  Company Number: None

PATIENT
  Age: 47 Year
  Sex: Female
  Weight: 59.85 kg

DRUGS (1)
  1. CIPROFLAXIN [Suspect]
     Active Substance: CIPROFLOXACIN
     Indication: URINARY TRACT INFECTION
     Dosage: ?          QUANTITY:6 TABLET(S);?
     Route: 048

REACTIONS (4)
  - Joint swelling [None]
  - Hypokinesia [None]
  - Menorrhagia [None]
  - Joint stiffness [None]

NARRATIVE: CASE EVENT DATE: 20190215
